FAERS Safety Report 21266861 (Version 2)
Quarter: 2023Q1

REPORT INFORMATION
  Report Type: Spontaneous
  Country: CN (occurrence: CN)
  Receive Date: 20220829
  Receipt Date: 20230113
  Transmission Date: 20230417
  Serious: Yes (Other)
  Sender: FDA-Public Use
  Company Number: CN-NOVARTISPH-NVSC2022CN193855

PATIENT
  Age: 27 Year
  Sex: Female

DRUGS (7)
  1. LETROZOLE [Suspect]
     Active Substance: LETROZOLE
     Indication: Ovulation induction
     Dosage: 2.5 MG, QD (FIFTH DAY OF MENSTRUAL CYCLE)
     Route: 065
  2. ANGELICA SINENSIS ROOT [Suspect]
     Active Substance: ANGELICA SINENSIS ROOT
     Indication: Ovulation induction
     Dosage: 15 MG
     Route: 065
  3. AMETHYST [Suspect]
     Active Substance: ETHINYL ESTRADIOL\LEVONORGESTREL
     Indication: Ovulation induction
     Dosage: 30 MG (DECOCTED FIRST)
     Route: 065
  4. HERBALS\ORANGE [Suspect]
     Active Substance: HERBALS\ORANGE
     Indication: Ovulation induction
     Dosage: 6 G
     Route: 065
  5. CYPROTERONE ACETATE\ETHINYL ESTRADIOL [Suspect]
     Active Substance: CYPROTERONE ACETATE\ETHINYL ESTRADIOL
     Indication: Ovulation induction
     Dosage: 10 G
     Route: 065
  6. PSORALEN [Suspect]
     Active Substance: PSORALEN
     Indication: Ovulation induction
     Dosage: 10 G
     Route: 065
  7. HERBALS [Suspect]
     Active Substance: HERBALS
     Indication: Ovulation induction
     Dosage: 9 G
     Route: 065

REACTIONS (3)
  - Premature delivery [Unknown]
  - Maternal exposure timing unspecified [Unknown]
  - Product use in unapproved indication [Unknown]

NARRATIVE: CASE EVENT DATE: 20211108
